FAERS Safety Report 5936798-0 (Version None)
Quarter: 2008Q4

REPORT INFORMATION
  Report Type: 
  Country: None (occurrence: None)
  Receive Date: 20081029
  Receipt Date: 20081015
  Transmission Date: 20090506
  Serious: No
  Sender: FDA-Public Use
  Company Number: ADE08002-L

PATIENT
  Age: 36 Year
  Sex: Female

DRUGS (3)
  1. CYCLOSPORINE [Suspect]
     Indication: IMMUNOMODULATORY THERAPY
     Dosage: ORAL, INITIAL 8MG/KG/DAY
  2. CORTICOSTEROIDS [Concomitant]
  3. MERCAPTOPURINE [Concomitant]

REACTIONS (7)
  - BLOOD CREATININE INCREASED [None]
  - CONVULSION [None]
  - HAEMODIALYSIS [None]
  - HYPOTENSION [None]
  - KLEBSIELLA SEPSIS [None]
  - MULTI-ORGAN FAILURE [None]
  - PATHOGEN RESISTANCE [None]
